FAERS Safety Report 18223112 (Version 1)
Quarter: 2020Q3

REPORT INFORMATION
  Report Type: Spontaneous
  Country: ES (occurrence: ES)
  Receive Date: 20200902
  Receipt Date: 20200902
  Transmission Date: 20201103
  Serious: Yes (Life-Threatening, Hospitalization)
  Sender: FDA-Public Use
  Company Number: ES-EISAI MEDICAL RESEARCH-EC-2020-079894

PATIENT
  Age: 39 Year
  Sex: Male

DRUGS (1)
  1. LENVIMA [Suspect]
     Active Substance: LENVATINIB
     Indication: PARAGANGLION NEOPLASM MALIGNANT
     Route: 048
     Dates: start: 20191218

REACTIONS (2)
  - Peritonitis [Recovering/Resolving]
  - Complicated appendicitis [Recovering/Resolving]

NARRATIVE: CASE EVENT DATE: 20200721
